FAERS Safety Report 6074245-1 (Version None)
Quarter: 2009Q1

REPORT INFORMATION
  Report Type: 
  Country: None (occurrence: None)
  Receive Date: 20090211
  Receipt Date: 20090203
  Transmission Date: 20090719
  Serious: Yes (Other)
  Sender: FDA-Public Use
  Company Number: PHHY2008JP17382

PATIENT
  Sex: Male

DRUGS (3)
  1. ZOMETA [Suspect]
     Indication: PROSTATE CANCER
     Dosage: 4 MG, QMO
     Route: 042
     Dates: start: 20060922, end: 20070817
  2. CISPLATIN [Concomitant]
     Dosage: 5 MG
     Route: 042
     Dates: start: 20060501, end: 20071213
  3. UFT [Concomitant]
     Dosage: 300 MG
     Route: 048
     Dates: start: 20060501, end: 20071213

REACTIONS (1)
  - TOOTHACHE [None]
